FAERS Safety Report 8229555-6 (Version None)
Quarter: 2012Q1

REPORT INFORMATION
  Report Type: 
  Country: None (occurrence: None)
  Receive Date: 20120322
  Receipt Date: 20120320
  Transmission Date: 20120608
  Serious: Yes (Hospitalization, Other)
  Sender: FDA-Public Use
  Company Number: US-FRI-1000029099

PATIENT
  Age: 65 Year
  Sex: Female

DRUGS (3)
  1. NORVASC [Suspect]
     Indication: HYPERTENSION
     Dates: start: 20120201
  2. BYSTOLIC [Suspect]
     Indication: HYPERTENSION
     Dosage: 10 MG
     Dates: start: 20110501, end: 20120201
  3. ASPIRIN [Concomitant]

REACTIONS (9)
  - URINARY INCONTINENCE [None]
  - FATIGUE [None]
  - HEART RATE DECREASED [None]
  - CARDIAC ARREST [None]
  - DEPRESSION [None]
  - ANXIETY [None]
  - LOSS OF CONSCIOUSNESS [None]
  - RESPIRATORY ARREST [None]
  - CHEST DISCOMFORT [None]
